FAERS Safety Report 5142723-5 (Version None)
Quarter: 2006Q4

REPORT INFORMATION
  Report Type: 
  Country: None (occurrence: None)
  Receive Date: 20061027
  Receipt Date: 20061006
  Transmission Date: 20070319
  Serious: Yes (Hospitalization)
  Sender: FDA-Public Use
  Company Number: GXKR2006GB06283

PATIENT
  Age: 69 Year
  Sex: Female

DRUGS (8)
  1. ASPIRIN [Suspect]
     Indication: PROPHYLAXIS
     Dosage: 75 MG, QD,ORAL
     Route: 048
     Dates: end: 20060926
  2. AMLODIPINE [Concomitant]
  3. ATORVASTATIN CALCIUM [Concomitant]
  4. FUROSEMIDE [Concomitant]
  5. GLICLAZIDE (GLICLAZIDE) [Concomitant]
  6. IRBESARTAN [Concomitant]
  7. METFORMIN HCL [Concomitant]
  8. ROSIGLITAZONE [Concomitant]

REACTIONS (3)
  - DUODENAL ULCER [None]
  - HAEMATEMESIS [None]
  - MELAENA [None]
